FAERS Safety Report 12500603 (Version 5)
Quarter: 2016Q4

REPORT INFORMATION
  Report Type: Spontaneous
  Country: US (occurrence: US)
  Receive Date: 20160627
  Receipt Date: 20161108
  Transmission Date: 20170207
  Serious: Yes (Congenital Anomaly, Other)
  Sender: FDA-Public Use
  Company Number: PHEH2016US015548

PATIENT
  Sex: Male

DRUGS (3)
  1. ONDANSETRON TEVA//ONDANSETRON [Suspect]
     Active Substance: ONDANSETRON
     Indication: FOETAL EXPOSURE DURING PREGNANCY
     Dosage: MOTHER DOSE: 04 MG PRN
     Route: 064
  2. ZOFRAN ODT [Suspect]
     Active Substance: ONDANSETRON HYDROCHLORIDE
     Indication: FOETAL EXPOSURE DURING PREGNANCY
     Dosage: UNK
     Route: 064
  3. ONDANSETRON [Suspect]
     Active Substance: ONDANSETRON
     Indication: FOETAL EXPOSURE DURING PREGNANCY
     Dosage: MOTHER DOSE: 04 MG PRN
     Route: 064

REACTIONS (17)
  - Wheezing [Unknown]
  - Congenital anomaly [Unknown]
  - Heart disease congenital [Unknown]
  - Heart rate irregular [Unknown]
  - Emotional distress [Unknown]
  - Pain [Unknown]
  - Dyspnoea [Unknown]
  - Atrial septal defect [Unknown]
  - Foetal exposure during pregnancy [Unknown]
  - Cyanosis [Unknown]
  - Anxiety [Unknown]
  - Gastrooesophageal reflux disease [Unknown]
  - Injury [Unknown]
  - Multiple congenital abnormalities [Unknown]
  - Left-to-right cardiac shunt [Unknown]
  - Apparent life threatening event [Unknown]
  - Anhedonia [Unknown]
